FAERS Safety Report 5067702-8 (Version None)
Quarter: 2006Q3

REPORT INFORMATION
  Report Type: 
  Country: None (occurrence: None)
  Receive Date: 20060712
  Receipt Date: 20060405
  Transmission Date: 20061208
  Serious: No
  Sender: FDA-Public Use
  Company Number: A03200602118

PATIENT
  Age: 75 Year
  Sex: Male

DRUGS (1)
  1. UROXATRAL [Suspect]
     Indication: MICTURITION DISORDER
     Dosage: 10 MG QD - ORAL
     Route: 048
     Dates: start: 20060404

REACTIONS (1)
  - DIARRHOEA [None]
